FAERS Safety Report 8809307 (Version 1)
Quarter: 2012Q4

REPORT INFORMATION
  Report Type: Spontaneous
  Country: US (occurrence: None)
  Receive Date: 20120924
  Receipt Date: 20120924
  Transmission Date: 20130627
  Serious: No
  Sender: FDA-Public Use
  Company Number: None

PATIENT

DRUGS (1)
  1. RISPERIDONE [Suspect]
     Indication: SCHIZOAFFECTIVE DISORDER
     Dosage: 3 dozes bi-monthly
     Dates: start: 201104

REACTIONS (1)
  - Feeling abnormal [None]
